FAERS Safety Report 26189889 (Version 1)
Quarter: 2025Q4

REPORT INFORMATION
  Report Type: Spontaneous
  Country: EU (occurrence: EU)
  Receive Date: 20251223
  Receipt Date: 20251223
  Transmission Date: 20260117
  Serious: Yes (Other)
  Sender: ALEXION PHARMACEUTICALS
  Company Number: EU-AstraZeneca-CH-01016423A

PATIENT
  Age: 71 Year
  Sex: Male

DRUGS (3)
  1. ACALABRUTINIB [Suspect]
     Active Substance: ACALABRUTINIB
     Indication: Plasmablastic lymphoma
     Dosage: 100 MILLIGRAM, Q12H
     Route: 061
     Dates: start: 20250224
  2. METFORMIN HYDROCHLORIDE [Concomitant]
     Active Substance: METFORMIN HYDROCHLORIDE
     Dosage: 850 MG 2X 1 TABLET
     Route: 065
  3. ALLOPURINOL [Concomitant]
     Active Substance: ALLOPURINOL
     Dosage: MILURIT 100 MG 1X 1 TABLET
     Route: 065

REACTIONS (1)
  - Haematotympanum [Recovering/Resolving]

NARRATIVE: CASE EVENT DATE: 20250412
